FAERS Safety Report 18037143 (Version 1)
Quarter: 2020Q3

REPORT INFORMATION
  Report Type: Other
  Country: IL (occurrence: IL)
  Receive Date: 20200717
  Receipt Date: 20200717
  Transmission Date: 20201103
  Serious: Yes (Hospitalization)
  Sender: FDA-Public Use
  Company Number: IL-ROCHE-2643888

PATIENT
  Age: 43 Year
  Sex: Male

DRUGS (4)
  1. COBIMETINIB. [Suspect]
     Active Substance: COBIMETINIB
     Indication: ERDHEIM-CHESTER DISEASE
     Route: 065
     Dates: start: 201703, end: 201705
  2. COBIMETINIB. [Suspect]
     Active Substance: COBIMETINIB
     Dosage: 20?60 MG
     Route: 065
     Dates: start: 201705, end: 201902
  3. VEMURAFENIB. [Suspect]
     Active Substance: VEMURAFENIB
     Indication: ERDHEIM-CHESTER DISEASE
     Route: 065
     Dates: start: 201603, end: 201608
  4. VEMURAFENIB. [Suspect]
     Active Substance: VEMURAFENIB
     Route: 065
     Dates: start: 201705, end: 201902

REACTIONS (2)
  - Skin toxicity [Recovered/Resolved]
  - Rash macular [Unknown]
